FAERS Safety Report 25411064 (Version 1)
Quarter: 2025Q2

REPORT INFORMATION
  Report Type: Spontaneous
  Country: SE (occurrence: SE)
  Receive Date: 20250609
  Receipt Date: 20250609
  Transmission Date: 20250717
  Serious: Yes (Hospitalization, Disabling)
  Sender: ACCORD
  Company Number: None

PATIENT
  Age: 21 Year
  Sex: Female

DRUGS (5)
  1. SERTRALINE [Suspect]
     Active Substance: SERTRALINE HYDROCHLORIDE
     Indication: Product used for unknown indication
     Dosage: 0+1
     Dates: start: 2010, end: 2024
  2. OMEPRAZOLE [Concomitant]
     Active Substance: OMEPRAZOLE
  3. DIENOGEST\ETHINYL ESTRADIOL [Concomitant]
     Active Substance: DIENOGEST\ETHINYL ESTRADIOL
  4. PROMETHAZINE HYDROCHLORIDE\THIOUREA [Concomitant]
     Active Substance: PROMETHAZINE HYDROCHLORIDE\THIOUREA
  5. MELATONIN [Concomitant]
     Active Substance: MELATONIN

REACTIONS (3)
  - Nausea [Not Recovered/Not Resolved]
  - Fatigue [Not Recovered/Not Resolved]
  - Muscular weakness [Not Recovered/Not Resolved]

NARRATIVE: CASE EVENT DATE: 20110101
